FAERS Safety Report 10418987 (Version 1)
Quarter: 2014Q2

REPORT INFORMATION
  Report Type: Spontaneous
  Country: US (occurrence: None)
  Receive Date: 20140617
  Receipt Date: 20140617
  Transmission Date: 20141212
  Serious: Yes (Other)
  Sender: FDA-Public Use
  Company Number: USW201307-000086

PATIENT
  Age: 62 Year
  Sex: Male
  Weight: 62.7 kg

DRUGS (4)
  1. APOKYN [Suspect]
     Indication: PARKINSON^S DISEASE
     Dosage: 0.2ML, EVERY TWO DAYS AS NEEDED; (SITE OF INJECTION: VENOUS), SUBCUTANEOUS
     Route: 058
     Dates: start: 20120911
  2. MIRAPEX [Suspect]
     Indication: PARKINSON^S DISEASE
  3. REQUIP [Suspect]
     Dates: start: 20130115, end: 20130221
  4. SINEMET [Suspect]
     Dosage: 25/250MG, 5 TIMES DAILY

REACTIONS (1)
  - Hypersexuality [None]
